FAERS Safety Report 4375985-2 (Version None)
Quarter: 2004Q2

REPORT INFORMATION
  Report Type: 
  Country: None (occurrence: None)
  Receive Date: 20040607
  Receipt Date: 20040526
  Transmission Date: 20050107
  Serious: Yes (Other)
  Sender: FDA-Public Use
  Company Number: 2004-05-1925

PATIENT
  Age: 56 Year
  Sex: Male

DRUGS (1)
  1. PEG-INTERFERON [Suspect]
     Indication: HEPATITIS C
     Dosage: SUBCUTANEOUS
     Route: 058

REACTIONS (4)
  - ANTINUCLEAR ANTIBODY POSITIVE [None]
  - SKIN LESION [None]
  - SKIN ULCER [None]
  - TRANSAMINASES DECREASED [None]
